FAERS Safety Report 8231393-5 (Version None)
Quarter: 2012Q1

REPORT INFORMATION
  Report Type: 
  Country: None (occurrence: None)
  Receive Date: 20120323
  Receipt Date: 20120308
  Transmission Date: 20120608
  Serious: No
  Sender: FDA-Public Use
  Company Number: US-ENDO PHARMACEUTICALS INC.-OPER20120301

PATIENT
  Sex: Male

DRUGS (4)
  1. OPANA ER [Suspect]
     Indication: PAIN
     Route: 048
  2. OPANA ER [Suspect]
     Indication: PAIN
     Route: 048
  3. OPANA ER [Suspect]
     Route: 048
  4. OPANA ER [Suspect]
     Route: 048
     Dates: end: 20120201

REACTIONS (4)
  - DISTURBANCE IN ATTENTION [None]
  - DRUG INEFFECTIVE [None]
  - INAPPROPRIATE SCHEDULE OF DRUG ADMINISTRATION [None]
  - DYSARTHRIA [None]
